FAERS Safety Report 8147695-7 (Version None)
Quarter: 2012Q1

REPORT INFORMATION
  Report Type: 
  Country: None (occurrence: None)
  Receive Date: 20120218
  Receipt Date: 20110308
  Transmission Date: 20120608
  Serious: No
  Sender: FDA-Public Use
  Company Number: US-ALLERGAN-1103333US

PATIENT
  Sex: Female

DRUGS (1)
  1. BOTOX COSMETIC [Suspect]
     Indication: PRODUCT USED FOR UNKNOWN INDICATION
     Dosage: UNK
     Dates: start: 20110225, end: 20110225

REACTIONS (6)
  - INCREASED UPPER AIRWAY SECRETION [None]
  - UPPER RESPIRATORY TRACT INFECTION [None]
  - ANXIETY [None]
  - SINUSITIS [None]
  - COUGH [None]
  - THROAT IRRITATION [None]
